FAERS Safety Report 12989668 (Version 1)
Quarter: 2016Q4

REPORT INFORMATION
  Report Type: Report from Study
  Country: FI (occurrence: FI)
  Receive Date: 20161201
  Receipt Date: 20161201
  Transmission Date: 20170207
  Serious: Yes (Life-Threatening, Hospitalization)
  Sender: FDA-Public Use
  Company Number: FI-ROCHE-1676751

PATIENT
  Age: 55 Year
  Sex: Male
  Weight: 131 kg

DRUGS (14)
  1. ZOPLICONE [Concomitant]
     Active Substance: ZOPICLONE
     Indication: INSOMNIA
     Route: 048
     Dates: start: 20150622
  2. CETIRIZIN [Concomitant]
     Active Substance: CETIRIZINE HYDROCHLORIDE
     Indication: PRURITUS
     Route: 048
     Dates: start: 20150614
  3. PARACETAMOL [Concomitant]
     Active Substance: ACETAMINOPHEN
     Indication: PAIN
     Route: 048
     Dates: start: 20151019
  4. SOMAC [Concomitant]
     Active Substance: PANTOPRAZOLE SODIUM
     Indication: DYSPEPSIA
     Route: 048
     Dates: start: 20151214
  5. CALCICHEW D3 FORTE [Concomitant]
     Active Substance: CALCIUM\CHOLECALCIFEROL
     Indication: METASTASES TO BONE
     Route: 048
  6. GEFILUS BASIC [Concomitant]
     Indication: PROPHYLAXIS
     Route: 048
  7. ATEZOLIZUMAB [Suspect]
     Active Substance: ATEZOLIZUMAB
     Indication: BLADDER TRANSITIONAL CELL CARCINOMA METASTATIC
     Dosage: MOST RECENT DOSE PRIOR TO THE EVENT=27 NOV 2015
     Route: 042
     Dates: start: 20151127
  8. OXYCODONE [Concomitant]
     Active Substance: OXYCODONE
     Indication: PAIN
     Route: 048
     Dates: start: 20151118
  9. MICROLAX (FINLAND) [Concomitant]
     Indication: CONSTIPATION
     Dosage: 1 OTHER
     Route: 054
     Dates: start: 20151130, end: 20151130
  10. GRANISETRON STADA [Concomitant]
     Indication: NAUSEA
     Route: 048
     Dates: start: 20150702
  11. EMGESAN [Concomitant]
     Indication: HYPOMAGNESAEMIA
     Route: 048
  12. GAVISCON (ALUMINIUM HYDROXIDE/CALCIUM CARBONATE/SODIUM ALGINATE/SODIUM [Concomitant]
     Indication: DYSPEPSIA
     Route: 048
     Dates: start: 20151215
  13. PRIMPERAN [Concomitant]
     Active Substance: METOCLOPRAMIDE HYDROCHLORIDE
     Indication: PROPHYLAXIS OF NAUSEA AND VOMITING
     Route: 048
  14. RED BLOOD CELLS [Concomitant]
     Active Substance: HUMAN RED BLOOD CELL
     Indication: ANAEMIA
     Dosage: 2 UNITS
     Route: 042
     Dates: start: 20151213, end: 20151213

REACTIONS (2)
  - Diarrhoea [Recovered/Resolved]
  - Deep vein thrombosis [Not Recovered/Not Resolved]

NARRATIVE: CASE EVENT DATE: 20151203
